FAERS Safety Report 7235812-2 (Version None)
Quarter: 2011Q1

REPORT INFORMATION
  Report Type: 
  Country: None (occurrence: None)
  Receive Date: 20110111
  Receipt Date: 20110105
  Transmission Date: 20110831
  Serious: Yes (Hospitalization)
  Sender: FDA-Public Use
  Company Number: 111082

PATIENT
  Age: 67 Year
  Sex: Male

DRUGS (1)
  1. DIPYRIDAMOLE [Suspect]
     Indication: SCAN MYOCARDIAL PERFUSION
     Dosage: 42MG/IV
     Route: 042
     Dates: start: 20101222

REACTIONS (1)
  - HEPATIC ENCEPHALOPATHY [None]
